FAERS Safety Report 25358833 (Version 2)
Quarter: 2025Q2

REPORT INFORMATION
  Report Type: Report from Study
  Country: CA (occurrence: CA)
  Receive Date: 20250526
  Receipt Date: 20250617
  Transmission Date: 20250717
  Serious: Yes (Other)
  Sender: TAKEDA
  Company Number: CA-TAKEDA-2023TUS075139

PATIENT
  Sex: Female

DRUGS (7)
  1. VEDOLIZUMAB [Suspect]
     Active Substance: VEDOLIZUMAB
     Indication: Colitis ulcerative
  2. VEDOLIZUMAB [Suspect]
     Active Substance: VEDOLIZUMAB
     Dosage: 300 MILLIGRAM, Q4WEEKS
     Dates: start: 20220927
  3. VEDOLIZUMAB [Suspect]
     Active Substance: VEDOLIZUMAB
     Dosage: 300 MILLIGRAM, Q4WEEKS
  4. VEDOLIZUMAB [Suspect]
     Active Substance: VEDOLIZUMAB
     Dosage: 300 MILLIGRAM, Q4WEEKS
     Dates: end: 20250520
  5. MESALAMINE [Concomitant]
     Active Substance: MESALAMINE
  6. PROCTOSEDYL [Concomitant]
     Active Substance: DIBUCAINE HYDROCHLORIDE\HYDROCORTISONE
  7. PENICILLIN [Concomitant]
     Active Substance: PENICILLIN
     Indication: Streptococcal sepsis

REACTIONS (10)
  - Colitis ulcerative [Unknown]
  - Drug ineffective [Unknown]
  - Illness [Unknown]
  - Menopausal symptoms [Unknown]
  - Poor quality sleep [Unknown]
  - Frequent bowel movements [Unknown]
  - Night sweats [Unknown]
  - Pyrexia [Unknown]
  - Migraine [Recovered/Resolved]
  - Viral infection [Recovered/Resolved]
